FAERS Safety Report 5220063-3 (Version None)
Quarter: 2007Q1

REPORT INFORMATION
  Report Type: 
  Country: None (occurrence: None)
  Receive Date: 20070124
  Receipt Date: 20070124
  Transmission Date: 20070707
  Serious: Yes (Life-Threatening, Hospitalization)
  Sender: FDA-Public Use
  Company Number: None

PATIENT
  Age: 80 Year
  Sex: Male
  Weight: 90.7194 kg

DRUGS (13)
  1. CLONIDINE [Suspect]
     Indication: HYPERTENSION
     Dosage: 0.2 MG PO BID
     Route: 048
  2. TRAVOPROST [Concomitant]
  3. FELODIPINE [Concomitant]
  4. TYLENOL W/ CODEINE [Concomitant]
  5. APAP TAB [Concomitant]
  6. ALLOPURINOL SODIUM [Concomitant]
  7. ASPIRIN [Concomitant]
  8. COLCHICINE [Concomitant]
  9. COSOPT [Concomitant]
  10. BRIMONIDINE TARTRATE [Concomitant]
  11. GLYBURIDE [Concomitant]
  12. LISINOPRIL [Concomitant]
  13. ROSIGLITAZONE [Concomitant]

REACTIONS (2)
  - ATRIOVENTRICULAR BLOCK [None]
  - BRADYCARDIA [None]
